FAERS Safety Report 9410510 (Version 1)
Quarter: 2013Q3

REPORT INFORMATION
  Report Type: Spontaneous
  Country: US (occurrence: None)
  Receive Date: 20130718
  Receipt Date: 20130718
  Transmission Date: 20140515
  Serious: Yes (Life-Threatening)
  Sender: FDA-Public Use
  Company Number: None

PATIENT
  Age: 46 Year
  Sex: Male

DRUGS (2)
  1. SERTRALINE [Suspect]
     Indication: DEPRESSION
     Dosage: 1 DAY
     Route: 048
     Dates: start: 20121228, end: 20130621
  2. SERTRALINE [Suspect]
     Indication: POST-TRAUMATIC STRESS DISORDER
     Dosage: 1 DAY
     Route: 048
     Dates: start: 20121228, end: 20130621

REACTIONS (16)
  - Muscle tightness [None]
  - Abasia [None]
  - Speech disorder [None]
  - Insomnia [None]
  - Personality change [None]
  - Anger [None]
  - Chromaturia [None]
  - Bedridden [None]
  - Aphagia [None]
  - Decreased appetite [None]
  - Weight decreased [None]
  - Vomiting [None]
  - Retching [None]
  - Anxiety [None]
  - Feeling abnormal [None]
  - Serotonin syndrome [None]
